FAERS Safety Report 9795566 (Version 1)
Quarter: 2014Q1

REPORT INFORMATION
  Report Type: Spontaneous
  Country: US (occurrence: US)
  Receive Date: 20140103
  Receipt Date: 20140103
  Transmission Date: 20141002
  Serious: Yes (Hospitalization)
  Sender: FDA-Public Use
  Company Number: US-BAYER-2014-000792

PATIENT
  Age: 37 Year
  Sex: Female
  Weight: 63.49 kg

DRUGS (6)
  1. YAZ [Suspect]
  2. YASMIN [Suspect]
  3. LEVAQUIN [Concomitant]
     Dosage: 500 MG FOR 10 DAYS
  4. BEXTRA [Concomitant]
     Dosage: 10 MG, UNK
  5. VICODIN [Concomitant]
  6. MOTRIN [Concomitant]

REACTIONS (1)
  - Pulmonary embolism [None]
